FAERS Safety Report 5216567-X (Version None)
Quarter: 2007Q1

REPORT INFORMATION
  Report Type: 
  Country: None (occurrence: None)
  Receive Date: 20061130
  Receipt Date: 20060814
  Transmission Date: 20070707
  Serious: Yes (Hospitalization)
  Sender: FDA-Public Use
  Company Number: US200608003224

PATIENT
  Sex: Male
  Weight: 104.3 kg

DRUGS (2)
  1. ZYPREXA [Suspect]
     Dates: start: 20000101
  2. METFORMIN HCL [Concomitant]

REACTIONS (4)
  - BLOOD CHOLESTEROL INCREASED [None]
  - CHEST PAIN [None]
  - DIABETES MELLITUS [None]
  - METABOLIC DISORDER [None]
